FAERS Safety Report 8879765 (Version 5)
Quarter: 2013Q4

REPORT INFORMATION
  Report Type: Report from Study
  Country: JP (occurrence: JP)
  Receive Date: 20121101
  Receipt Date: 20131127
  Transmission Date: 20140711
  Serious: Yes (Hospitalization, Other)
  Sender: FDA-Public Use
  Company Number: JP-VERTEX PHARMACEUTICAL INC.-2012-023816

PATIENT
  Age: 60 Year
  Sex: Male

DRUGS (28)
  1. VX-950 (TELAPREVIR) [Suspect]
     Indication: CHRONIC HEPATITIS C
     Dosage: 2250 MG, QD
     Route: 048
     Dates: start: 20120820, end: 20121001
  2. VX-950 (TELAPREVIR) [Suspect]
     Dosage: 2250 MG, QD
     Route: 048
     Dates: start: 20121127, end: 20130203
  3. REBETOL [Suspect]
     Indication: CHRONIC HEPATITIS C
     Dosage: 1000 MG, QD
     Route: 048
     Dates: start: 20120820, end: 20121001
  4. REBETOL [Suspect]
     Dosage: 1000 MG, QD
     Route: 048
     Dates: start: 20121127, end: 20130203
  5. PEGINTRON [Suspect]
     Indication: CHRONIC HEPATITIS C
     Dosage: 1.5 ?G/KG, QW
     Route: 058
     Dates: start: 20120820, end: 20120925
  6. PEGINTRON [Suspect]
     Dosage: 1.5 ?G/KG, QW
     Route: 058
     Dates: start: 20121127, end: 20121218
  7. PEGINTRON [Suspect]
     Dosage: 1 ?G/KG, QW
     Route: 058
     Dates: start: 20121225, end: 20130102
  8. PEGINTRON [Suspect]
     Dosage: 1.5 ?G/KG, QW
     Route: 058
     Dates: start: 20130108
  9. WARFARIN POTASSIUM [Suspect]
     Indication: ATRIAL FIBRILLATION
     Dosage: 3.5 MG, QD
     Route: 048
     Dates: end: 20120827
  10. WARFARIN POTASSIUM [Suspect]
     Dosage: 3 MG, QD
     Route: 048
     Dates: start: 20120829, end: 20120910
  11. WARFARIN POTASSIUM [Suspect]
     Dosage: 2 MG, QD
     Route: 048
     Dates: start: 20120911, end: 20120917
  12. WARFARIN POTASSIUM [Suspect]
     Dosage: 3 MG, QD
     Route: 048
     Dates: start: 20120918, end: 20120928
  13. WARFARIN POTASSIUM [Suspect]
     Dosage: 3 MG, QD
     Route: 048
     Dates: start: 20121002, end: 20121105
  14. WARFARIN POTASSIUM [Suspect]
     Dosage: 2.5 MG, QD
     Route: 048
     Dates: start: 20121106, end: 20121203
  15. WARFARIN POTASSIUM [Suspect]
     Dosage: 2 MG, QD
     Route: 048
     Dates: start: 20121204, end: 20121210
  16. WARFARIN POTASSIUM [Suspect]
     Dosage: 2.5 MG, QD
     Route: 048
     Dates: start: 20121211, end: 20130211
  17. WARFARIN POTASSIUM [Suspect]
     Dosage: 2 MG, QD
     Route: 048
     Dates: start: 20130212
  18. ZYLORIC [Concomitant]
     Dosage: 100 MG, QD
     Route: 048
     Dates: end: 20120903
  19. CONIEL [Concomitant]
     Dosage: 4 MG, QD
     Route: 048
     Dates: end: 20120824
  20. LOCHOL [Concomitant]
     Dosage: 30 MG, QD
     Route: 048
     Dates: end: 20120903
  21. LOXOPROFEN [Concomitant]
     Dosage: 60 MG, QD
     Route: 048
     Dates: start: 20120820, end: 20121001
  22. LOXOPROFEN [Concomitant]
     Dosage: 60 MG, QD
     Route: 048
     Dates: start: 20121204
  23. MUCOSTA [Concomitant]
     Dosage: 100 MG, QD
     Route: 048
     Dates: start: 20120820, end: 20121001
  24. MUCOSTA [Concomitant]
     Dosage: 100 MG, QD
     Route: 048
     Dates: start: 20121204
  25. PARIET [Concomitant]
     Dosage: 10 MG, QD
     Route: 048
     Dates: start: 20120824
  26. CRESTOR [Concomitant]
     Dosage: 2.5 MG, QD
     Route: 048
     Dates: start: 20120904
  27. SALOBEL [Concomitant]
     Dosage: 100 MG, QD
     Route: 048
     Dates: start: 20120904
  28. LOXOPROFEN SODIUM [Concomitant]
     Dosage: 60 MG, QD
     Route: 048
     Dates: start: 20121204

REACTIONS (2)
  - White blood cell count decreased [Not Recovered/Not Resolved]
  - Intervertebral disc protrusion [Recovered/Resolved]
